FAERS Safety Report 20362142 (Version 6)
Quarter: 2022Q2

REPORT INFORMATION
  Report Type: Report from Study
  Country: US (occurrence: US)
  Receive Date: 20220121
  Receipt Date: 20220613
  Transmission Date: 20220721
  Serious: No
  Sender: FDA-Public Use
  Company Number: US-NOVARTISTESTPH-NVSC2022US011938

PATIENT
  Sex: Female

DRUGS (2)
  1. COSENTYX [Suspect]
     Active Substance: SECUKINUMAB
     Indication: Psoriatic arthropathy
     Dosage: 300 MG, QW
     Route: 058
  2. COSENTYX [Suspect]
     Active Substance: SECUKINUMAB
     Dosage: 300 MG, QMO
     Route: 058

REACTIONS (6)
  - Injection site bruising [Recovered/Resolved]
  - Vein discolouration [Not Recovered/Not Resolved]
  - Gait inability [Unknown]
  - Gait disturbance [Unknown]
  - Psoriasis [Unknown]
  - Drug ineffective [Unknown]
